FAERS Safety Report 7265566-5 (Version None)
Quarter: 2011Q1

REPORT INFORMATION
  Report Type: 
  Country: None (occurrence: None)
  Receive Date: 20110131
  Receipt Date: 20110124
  Transmission Date: 20110831
  Serious: Yes (Hospitalization)
  Sender: FDA-Public Use
  Company Number: US-B.I. PHARMACEUTICALS,INC./RIDGEFIELD-2010-BP-13863BP

PATIENT
  Sex: Female
  Weight: 61.23 kg

DRUGS (4)
  1. NORVASC [Concomitant]
     Dates: start: 20100906
  2. LISINOPRIL [Concomitant]
     Dates: start: 20090401
  3. PRADAXA [Suspect]
     Indication: ATRIAL FIBRILLATION
     Dosage: 300 MG
     Route: 048
     Dates: start: 20101125, end: 20101125
  4. PRADAXA [Suspect]
     Indication: DYSPNOEA

REACTIONS (6)
  - NECK PAIN [None]
  - DYSPNOEA [None]
  - CHEST PAIN [None]
  - ABDOMINAL DISCOMFORT [None]
  - PAIN IN JAW [None]
  - MALAISE [None]
